FAERS Safety Report 7225146-4 (Version None)
Quarter: 2011Q1

REPORT INFORMATION
  Report Type: 
  Country: None (occurrence: None)
  Receive Date: 20110113
  Receipt Date: 20110105
  Transmission Date: 20110831
  Serious: Yes (Other)
  Sender: FDA-Public Use
  Company Number: A0903338A

PATIENT
  Age: 68 Year
  Sex: Female

DRUGS (13)
  1. PLAVIX [Concomitant]
  2. LIPITOR [Concomitant]
  3. INDERAL [Concomitant]
  4. PROVIGIL [Concomitant]
  5. LORAZEPAM [Concomitant]
  6. OMEPRAZOLE [Concomitant]
  7. NICOTINE [Concomitant]
  8. GABAPENTIN [Concomitant]
  9. ADVAIR HFA [Suspect]
     Indication: CHRONIC OBSTRUCTIVE PULMONARY DISEASE
     Dosage: 1PUFF TWICE PER DAY
     Route: 055
     Dates: start: 20101229, end: 20110104
  10. CITALOPRAM [Concomitant]
  11. LEVOTHYROXINE [Concomitant]
  12. ZETIA [Concomitant]
  13. TOPAMAX [Concomitant]

REACTIONS (5)
  - APHAGIA [None]
  - STOMATITIS [None]
  - TONGUE DISORDER [None]
  - OROPHARYNGEAL PAIN [None]
  - GLOSSITIS [None]
